FAERS Safety Report 6492934-1 (Version None)
Quarter: 2009Q4

REPORT INFORMATION
  Report Type: 
  Country: None (occurrence: None)
  Receive Date: 20091211
  Receipt Date: 20091211
  Transmission Date: 20100525
  Serious: Yes (Other)
  Sender: FDA-Public Use
  Company Number: None

PATIENT
  Sex: Female
  Weight: 73.4827 kg

DRUGS (1)
  1. ARTHROTEC [Suspect]
     Indication: MUSCULOSKELETAL PAIN
     Dosage: 75MG TWICE PER DAY PO
     Route: 048
     Dates: start: 20091207, end: 20091208

REACTIONS (1)
  - VAGINAL HAEMORRHAGE [None]
